FAERS Safety Report 19483228 (Version 1)
Quarter: 2021Q3

REPORT INFORMATION
  Report Type: Spontaneous
  Country: US (occurrence: US)
  Receive Date: 20210701
  Receipt Date: 20210701
  Transmission Date: 20211014
  Serious: No
  Sender: FDA-Public Use
  Company Number: US-AVERITAS PHARMA, INC.-2020-107578

PATIENT
  Age: 76 Year
  Sex: Male

DRUGS (1)
  1. QUTENZA [Suspect]
     Active Substance: CAPSAICIN
     Indication: POST HERPETIC NEURALGIA
     Dosage: UNK
     Route: 061
     Dates: start: 20201113, end: 20201113

REACTIONS (3)
  - Discomfort [Unknown]
  - Application site pain [Not Recovered/Not Resolved]
  - Drug ineffective [Unknown]
